FAERS Safety Report 4892340-7 (Version None)
Quarter: 2006Q1

REPORT INFORMATION
  Report Type: 
  Country: None (occurrence: None)
  Receive Date: 20060126
  Receipt Date: 20060119
  Transmission Date: 20060701
  Serious: Yes (Other)
  Sender: FDA-Public Use
  Company Number: AR-GLAXOSMITHKLINE-A0590521A

PATIENT
  Age: 35 Year
  Sex: Female

DRUGS (2)
  1. PAXIL CR [Suspect]
     Indication: DEPRESSION
     Dosage: 25MG PER DAY
     Route: 048
     Dates: start: 20050101
  2. STRATTERA [Concomitant]
     Dosage: 40MG PER DAY
     Route: 065

REACTIONS (2)
  - ANAEMIA [None]
  - HYPERCHOLESTEROLAEMIA [None]
